FAERS Safety Report 6235076-2 (Version None)
Quarter: 2009Q2

REPORT INFORMATION
  Report Type: 
  Country: None (occurrence: None)
  Receive Date: 20090618
  Receipt Date: 20090520
  Transmission Date: 20091009
  Serious: Yes (Other)
  Sender: FDA-Public Use
  Company Number: PHHY2009IT19729

PATIENT
  Sex: Female

DRUGS (5)
  1. EXELON [Suspect]
     Indication: DEMENTIA ALZHEIMER'S TYPE
     Dosage: 1.5 MG, QD
     Route: 048
     Dates: start: 20090427, end: 20090510
  2. SERENASE [Suspect]
     Indication: ABNORMAL BEHAVIOUR
     Dosage: 20 DRP/DAY
     Route: 048
     Dates: start: 20090404
  3. CITALOPRAM HYDROBROMIDE [Concomitant]
     Dosage: 5 DRP, QD
     Route: 048
     Dates: start: 20090404
  4. ASPIRIN [Concomitant]
     Dosage: 100 MG, UNK
     Route: 048
     Dates: start: 20090427
  5. SEREPAX [Concomitant]
     Dosage: 15 MG, UNK
     Route: 048
     Dates: start: 20090304

REACTIONS (1)
  - TRANSIENT ISCHAEMIC ATTACK [None]
